FAERS Safety Report 7739273-6 (Version None)
Quarter: 2011Q3

REPORT INFORMATION
  Report Type: 
  Country: None (occurrence: None)
  Receive Date: 20110909
  Receipt Date: 20110904
  Transmission Date: 20111222
  Serious: Yes (Hospitalization, Other)
  Sender: FDA-Public Use
  Company Number: US-JNJFOC-20110902707

PATIENT
  Sex: Male
  Weight: 60.33 kg

DRUGS (3)
  1. FLAGYL [Suspect]
     Indication: DIVERTICULITIS
     Route: 048
     Dates: start: 20110801
  2. LEVAQUIN [Suspect]
     Indication: DIVERTICULITIS
     Route: 048
     Dates: start: 20110826, end: 20110830
  3. LEVAQUIN [Suspect]
     Route: 048
     Dates: start: 20110831

REACTIONS (2)
  - OEDEMA PERIPHERAL [None]
  - JOINT SWELLING [None]
